FAERS Safety Report 6046693-7 (Version None)
Quarter: 2009Q1

REPORT INFORMATION
  Report Type: 
  Country: None (occurrence: None)
  Receive Date: 20090122
  Receipt Date: 20080915
  Transmission Date: 20090719
  Serious: No
  Sender: FDA-Public Use
  Company Number: US-BAYER-200813781BCC

PATIENT
  Age: 84 Year
  Sex: Female
  Weight: 73 kg

DRUGS (6)
  1. ALEVE (CAPLET) [Suspect]
     Indication: SURGERY
     Dosage: TOTAL DAILY DOSE: 440 MG  UNIT DOSE: 220 MG
     Route: 048
     Dates: start: 20080801
  2. PERCOCET [Concomitant]
  3. BENICAR [Concomitant]
  4. DILTIAZEM [Concomitant]
  5. LEVOTHYROXINE SODIUM [Concomitant]
  6. FLEXERIL [Concomitant]

REACTIONS (3)
  - ABDOMINAL PAIN [None]
  - BURNING SENSATION [None]
  - GASTRITIS [None]
